FAERS Safety Report 9462691 (Version 2)
Quarter: 2013Q4

REPORT INFORMATION
  Report Type: Spontaneous
  Country: US (occurrence: US)
  Receive Date: 20130816
  Receipt Date: 20131029
  Transmission Date: 20140711
  Serious: Yes (Other)
  Sender: FDA-Public Use
  Company Number: US-PFIZER INC-2013234685

PATIENT
  Age: 95 Year
  Sex: Female
  Weight: 52.2 kg

DRUGS (2)
  1. ESTRING [Suspect]
     Indication: VULVOVAGINAL DRYNESS
     Dosage: 2 MG, UNK
     Dates: start: 201212
  2. ESTRING [Suspect]
     Indication: PROPHYLAXIS URINARY TRACT INFECTION
     Dosage: UNK MG, UNK
     Route: 067
     Dates: start: 20130614, end: 201307

REACTIONS (1)
  - Vaginal haemorrhage [Recovered/Resolved]
